FAERS Safety Report 9702392 (Version 3)
Quarter: 2013Q4

REPORT INFORMATION
  Report Type: Spontaneous
  Country: US (occurrence: US)
  Receive Date: 20131121
  Receipt Date: 20131210
  Transmission Date: 20140711
  Serious: Yes (Disabling)
  Sender: FDA-Public Use
  Company Number: US-PERRIGO-13US011481

PATIENT
  Age: 31 Year
  Sex: Female
  Weight: 74.83 kg

DRUGS (9)
  1. MICONAZOLE NITRATE 2% 7DAY 825 [Suspect]
     Indication: VULVOVAGINAL MYCOTIC INFECTION
     Dosage: ONE APPLICATION, QHS
     Route: 067
     Dates: start: 20131018, end: 20131020
  2. NEURONTIN [Concomitant]
     Indication: NEURALGIA
     Dosage: 600 MG, TID
     Route: 048
  3. METFORMIN [Concomitant]
     Indication: DIABETES MELLITUS
     Dosage: 250 MG, QD
     Route: 048
  4. LEXAPRO [Concomitant]
     Indication: DEPRESSION
     Dosage: 20MG, QD
     Route: 048
     Dates: start: 20131030
  5. LEXAPRO [Concomitant]
     Indication: ANXIETY
  6. CELEXA                             /00582602/ [Concomitant]
     Indication: DEPRESSION
     Dosage: 40 MG, QD
     Route: 048
     Dates: end: 20131030
  7. CELEXA                             /00582602/ [Concomitant]
     Indication: ANXIETY
  8. CLONAZEPAM [Concomitant]
     Indication: PRODUCT USED FOR UNKNOWN INDICATION
     Dosage: 1 MG, QD PRN
     Route: 048
  9. TRAMADOL [Concomitant]
     Indication: PAIN
     Dosage: 50 MG, TID
     Route: 048

REACTIONS (9)
  - Vulvovaginal pain [Not Recovered/Not Resolved]
  - Vaginal laceration [Unknown]
  - Genital injury [Unknown]
  - Uterine cervical laceration [Unknown]
  - Vaginal haemorrhage [Unknown]
  - Female sexual dysfunction [Unknown]
  - Abdominal pain lower [Unknown]
  - Anxiety [Unknown]
  - Expired drug administered [Unknown]
